FAERS Safety Report 6227480-3 (Version None)
Quarter: 2009Q2

REPORT INFORMATION
  Report Type: 
  Country: None (occurrence: None)
  Receive Date: 20090612
  Receipt Date: 20090603
  Transmission Date: 20091009
  Serious: Yes (Other)
  Sender: FDA-Public Use
  Company Number: PHEH2009US05697

PATIENT
  Age: 62 Year
  Sex: Male

DRUGS (3)
  1. ZOMETA [Suspect]
     Dosage: 4 MG, EVERY 6 WEEKS
     Route: 042
  2. CISPLATIN [Concomitant]
     Dosage: 6 CYCLES
  3. AVASTIN [Concomitant]
     Dosage: UNK

REACTIONS (3)
  - BONE DISORDER [None]
  - PAIN IN JAW [None]
  - TOOTH EXTRACTION [None]
